FAERS Safety Report 13051343 (Version 1)
Quarter: 2016Q4

REPORT INFORMATION
  Report Type: Spontaneous
  Country: US (occurrence: US)
  Receive Date: 20161221
  Receipt Date: 20161221
  Transmission Date: 20170207
  Serious: No
  Sender: FDA-Public Use
  Company Number: US-ENDO PHARMACEUTICALS INC.-2016-002816

PATIENT
  Sex: Female
  Weight: 71.21 kg

DRUGS (7)
  1. VICODIN [Suspect]
     Active Substance: ACETAMINOPHEN\HYDROCODONE BITARTRATE
     Indication: PAIN
     Dosage: 5/325 MG
     Route: 048
     Dates: start: 201503
  2. SIMVASTATIN. [Concomitant]
     Active Substance: SIMVASTATIN
     Indication: BLOOD CHOLESTEROL
  3. OPANA ER [Suspect]
     Active Substance: OXYMORPHONE HYDROCHLORIDE
     Indication: PAIN
     Route: 048
     Dates: start: 200810
  4. CYCLOBENZAPRINE HYDROCHLORIDE 10MG [Suspect]
     Active Substance: CYCLOBENZAPRINE HYDROCHLORIDE
     Indication: PAIN
     Route: 048
     Dates: start: 200503
  5. GABAPENTIN. [Concomitant]
     Active Substance: GABAPENTIN
     Indication: NEURALGIA
  6. CELEBREX [Suspect]
     Active Substance: CELECOXIB
     Indication: PAIN
     Route: 048
     Dates: start: 200010
  7. BLACK CO HASH [Concomitant]
     Indication: HOT FLUSH

REACTIONS (7)
  - Peripheral swelling [Unknown]
  - Euphoric mood [Unknown]
  - Logorrhoea [Unknown]
  - Hand deformity [Unknown]
  - Condition aggravated [Unknown]
  - Dysphonia [None]
  - Insomnia [Unknown]
